FAERS Safety Report 7152817-0 (Version None)
Quarter: 2010Q4

REPORT INFORMATION
  Report Type: 
  Country: None (occurrence: None)
  Receive Date: 20101130
  Receipt Date: 20101116
  Transmission Date: 20110411
  Serious: Yes (Hospitalization)
  Sender: FDA-Public Use
  Company Number: 021509

PATIENT
  Sex: Female
  Weight: 47.1 kg

DRUGS (15)
  1. LEVETIRACETAM [Suspect]
     Indication: EPILEPSY
     Dosage: SEE IMAGE
     Route: 048
     Dates: start: 20060907, end: 20061004
  2. LEVETIRACETAM [Suspect]
     Indication: EPILEPSY
     Dosage: SEE IMAGE
     Route: 048
     Dates: start: 20061005, end: 20061129
  3. LEVETIRACETAM [Suspect]
     Indication: EPILEPSY
     Dosage: SEE IMAGE
     Route: 048
     Dates: start: 20061130, end: 20100118
  4. LEVETIRACETAM [Suspect]
     Indication: EPILEPSY
     Dosage: SEE IMAGE
     Route: 048
     Dates: start: 20100119, end: 20100215
  5. LEVETIRACETAM [Suspect]
     Indication: EPILEPSY
     Dosage: SEE IMAGE
     Route: 048
     Dates: start: 20100216, end: 20100722
  6. LEVETIRACETAM [Suspect]
     Indication: EPILEPSY
     Dosage: SEE IMAGE
     Route: 048
     Dates: start: 20060127
  7. LEVETIRACETAM [Suspect]
     Indication: EPILEPSY
     Dosage: SEE IMAGE
     Route: 048
     Dates: start: 20100723
  8. BLONANSERIN (LONASEN) [Suspect]
     Indication: IDEAS OF REFERENCE
     Dosage: (4 MG ORAL) ; (8 MG ORAL) ; (12 MG ORAL) ; (18 MG ORAL)
     Route: 048
     Dates: start: 20100714, end: 20100726
  9. BLONANSERIN (LONASEN) [Suspect]
     Indication: IDEAS OF REFERENCE
     Dosage: (4 MG ORAL) ; (8 MG ORAL) ; (12 MG ORAL) ; (18 MG ORAL)
     Route: 048
     Dates: start: 20100727, end: 20100816
  10. BLONANSERIN (LONASEN) [Suspect]
     Indication: IDEAS OF REFERENCE
     Dosage: (4 MG ORAL) ; (8 MG ORAL) ; (12 MG ORAL) ; (18 MG ORAL)
     Route: 048
     Dates: start: 20100817, end: 20100906
  11. BLONANSERIN (LONASEN) [Suspect]
     Indication: IDEAS OF REFERENCE
     Dosage: (4 MG ORAL) ; (8 MG ORAL) ; (12 MG ORAL) ; (18 MG ORAL)
     Route: 048
     Dates: start: 20100907
  12. CARBAMAZEPINE [Concomitant]
  13. TELESMIN [Concomitant]
  14. LAMICTAL [Concomitant]
  15. ABILIFY [Concomitant]

REACTIONS (6)
  - ACNE [None]
  - DRUG EFFECT DECREASED [None]
  - ERYTHEMA [None]
  - LACTATION DISORDER [None]
  - MENSTRUATION IRREGULAR [None]
  - SEBACEOUS GLANDS OVERACTIVITY [None]
